FAERS Safety Report 11300962 (Version 1)
Quarter: 2015Q3

REPORT INFORMATION
  Report Type: Spontaneous
  Country: US (occurrence: US)
  Receive Date: 20150722
  Receipt Date: 20150722
  Transmission Date: 20151125
  Serious: No
  Sender: FDA-Public Use
  Company Number: US-ELI_LILLY_AND_COMPANY-US201111007249

PATIENT
  Sex: Male

DRUGS (2)
  1. HUMATROPE [Suspect]
     Active Substance: SOMATROPIN
     Indication: BODY HEIGHT BELOW NORMAL
     Dosage: 1.8 MG, QD
  2. MOTRIN [Concomitant]
     Active Substance: IBUPROFEN
     Route: 048

REACTIONS (4)
  - Injection site bruising [Unknown]
  - Fatigue [Unknown]
  - Underdose [Unknown]
  - Increased appetite [Unknown]
